FAERS Safety Report 16114203 (Version 1)
Quarter: 2019Q1

REPORT INFORMATION
  Report Type: Spontaneous
  Country: US (occurrence: US)
  Receive Date: 20190325
  Receipt Date: 20190325
  Transmission Date: 20190418
  Serious: No
  Sender: FDA-Public Use
  Company Number: US-ALLERGAN-1859746US

PATIENT
  Sex: Female
  Weight: 58.96 kg

DRUGS (2)
  1. LATISSE [Suspect]
     Active Substance: BIMATOPROST
     Indication: GROWTH OF EYELASHES
     Dosage: 1-2 DROPS
     Route: 061
     Dates: start: 2013
  2. EYELINER [Concomitant]
     Dosage: UNK

REACTIONS (4)
  - Product storage error [Unknown]
  - Incorrect dose administered [Unknown]
  - Drug ineffective [Unknown]
  - Madarosis [Not Recovered/Not Resolved]
